FAERS Safety Report 5027727-5 (Version None)
Quarter: 2006Q2

REPORT INFORMATION
  Report Type: 
  Country: None (occurrence: None)
  Receive Date: 20060428
  Receipt Date: 20060131
  Transmission Date: 20061013
  Serious: No
  Sender: FDA-Public Use
  Company Number: COT_0444_2006

PATIENT
  Age: 64 Year
  Sex: Female
  Weight: 86.1834 kg

DRUGS (22)
  1. VENTAVIS [Suspect]
     Indication: PULMONARY HYPERTENSION
     Dosage: 2.5 MCG ONCE IH
     Dates: start: 20051031, end: 20051031
  2. VENTAVIS [Suspect]
     Indication: PULMONARY HYPERTENSION
     Dosage: 5 MCG 4 TIMES A DAY IH
     Dates: start: 20051031
  3. VENTAVIS [Suspect]
     Indication: PULMONARY HYPERTENSION
     Dosage: 5 MCG 4 TIMES A DAY IH
     Dates: start: 20051031
  4. VENTAVIS [Suspect]
     Indication: PULMONARY HYPERTENSION
     Dosage: 5 MCG 4 TIMES A DAY IH
     Dates: start: 20051031
  5. VENTAVIS [Suspect]
     Indication: PULMONARY HYPERTENSION
     Dosage: 5 MCG 4 TIMES A DAY IH
     Dates: start: 20051031
  6. SILDENAFIL [Concomitant]
  7. SPIRONOLACTONE [Concomitant]
  8. AMBIEN [Concomitant]
  9. ACIPHEX [Concomitant]
  10. METOCLOPRAMIDE HCL [Concomitant]
  11. FERROUS GLUCONATE [Concomitant]
  12. POTASSIUM CHLORIDE [Concomitant]
  13. BUSIRONE [Concomitant]
  14. FOLIC ACID [Concomitant]
  15. CYANOCOBALMAIN [Concomitant]
  16. ZOLOFT [Concomitant]
  17. ROLAIDS [Concomitant]
  18. TYLENOL (CAPLET) [Concomitant]
  19. SINGULAIR [Concomitant]
  20. IMODIUM [Concomitant]
  21. LODINE XL [Concomitant]
  22. NEURONTIN [Concomitant]

REACTIONS (3)
  - HEADACHE [None]
  - NAUSEA [None]
  - PAIN IN EXTREMITY [None]
